FAERS Safety Report 8579391-6 (Version None)
Quarter: 2012Q3

REPORT INFORMATION
  Report Type: 
  Country: None (occurrence: None)
  Receive Date: 20120808
  Receipt Date: 20120802
  Transmission Date: 20120928
  Serious: Yes (Hospitalization, Other)
  Sender: FDA-Public Use
  Company Number: CA-ABBOTT-04P-028-0283048-00

PATIENT
  Age: 5 Year
  Sex: Female

DRUGS (3)
  1. VALPROATE SODIUM [Suspect]
     Indication: CONVULSION PROPHYLAXIS
  2. VALPROATE SODIUM [Suspect]
     Route: 048
     Dates: start: 20000101
  3. VALPROATE SODIUM [Suspect]
     Indication: EPILEPSY
     Route: 048
     Dates: start: 20000101

REACTIONS (3)
  - PANCREATITIS [None]
  - DIABETES MELLITUS [None]
  - XANTHOMA [None]
